FAERS Safety Report 8965799 (Version 1)
Quarter: 2012Q4

REPORT INFORMATION
  Report Type: Spontaneous
  Country: US (occurrence: None)
  Receive Date: 20121213
  Receipt Date: 20121213
  Transmission Date: 20130627
  Serious: Yes (Other)
  Sender: FDA-Public Use
  Company Number: None

PATIENT
  Age: 47 Year
  Sex: Male

DRUGS (2)
  1. ZYPREXA [Suspect]
     Dosage: 5 mg 1 pr q HS
     Dates: start: 20120911, end: 20121105
  2. ZYPREXA [Suspect]
     Dosage: 5 mg 1 pr q HS
     Dates: start: 20120911, end: 20121105

REACTIONS (2)
  - Product substitution issue [None]
  - Drug ineffective [None]
